FAERS Safety Report 19949165 (Version 1)
Quarter: 2021Q4

REPORT INFORMATION
  Report Type: Spontaneous
  Country: TR (occurrence: TR)
  Receive Date: 20211013
  Receipt Date: 20211013
  Transmission Date: 20220303
  Serious: Yes (Hospitalization)
  Sender: FDA-Public Use
  Company Number: TR-STRIDES ARCOLAB LIMITED-2021SP028528

PATIENT
  Age: 50 Year
  Sex: Female

DRUGS (7)
  1. TACROLIMUS [Interacting]
     Active Substance: TACROLIMUS
     Indication: Renal transplant
     Dosage: 1.5 MILLIGRAM PER DAY`
     Route: 065
  2. MYCOPHENOLATE MOFETIL [Suspect]
     Active Substance: MYCOPHENOLATE MOFETIL
     Indication: Renal transplant
     Dosage: 720 MILLIGRAM PER DAY
     Route: 065
  3. PREDNISOLONE [Suspect]
     Active Substance: PREDNISOLONE
     Indication: Renal transplant
     Dosage: 5 MILLIGRAM PER DAY
     Route: 065
  4. THYMOCYTE IMMUNE GLOBULIN NOS [Suspect]
     Active Substance: THYMOCYTE IMMUNE GLOBULIN NOS
     Indication: Renal transplant
     Dosage: UNK, INDUCTION
     Route: 065
  5. AZITHROMYCIN ANHYDROUS [Interacting]
     Active Substance: AZITHROMYCIN ANHYDROUS
     Indication: Evidence based treatment
     Dosage: 500 MILLIGRAM, LOADING DOSE
     Route: 065
  6. AZITHROMYCIN ANHYDROUS [Interacting]
     Active Substance: AZITHROMYCIN ANHYDROUS
     Dosage: 250 MILLIGRAM PER DAY
     Route: 065
  7. AMLODIPINE [Concomitant]
     Active Substance: AMLODIPINE BESYLATE
     Indication: Hypertension
     Dosage: 10 MILLIGRAM PER DAY
     Route: 065

REACTIONS (4)
  - Drug interaction [Unknown]
  - Drug level increased [Recovered/Resolved]
  - Blood creatinine increased [Recovered/Resolved]
  - Pneumonia bacterial [Unknown]
